FAERS Safety Report 21746623 (Version 5)
Quarter: 2023Q1

REPORT INFORMATION
  Report Type: Spontaneous
  Country: US (occurrence: US)
  Receive Date: 20221219
  Receipt Date: 20230314
  Transmission Date: 20230418
  Serious: No
  Sender: FDA-Public Use
  Company Number: US-GBT-018630

PATIENT
  Age: 53 Year
  Sex: Male

DRUGS (2)
  1. OXBRYTA [Suspect]
     Active Substance: VOXELOTOR
     Indication: Product used for unknown indication
     Dates: start: 20221127, end: 2022
  2. OXBRYTA [Suspect]
     Active Substance: VOXELOTOR
     Indication: Product used for unknown indication
     Dates: start: 20221207

REACTIONS (10)
  - Peripheral swelling [Recovered/Resolved]
  - Emergency care [Unknown]
  - Product dose omission issue [Unknown]
  - Oral candidiasis [Unknown]
  - Diarrhoea [Not Recovered/Not Resolved]
  - Product dose omission issue [Unknown]
  - Arthralgia [Unknown]
  - Pain in extremity [Unknown]
  - Therapy interrupted [Unknown]
  - Pain [Not Recovered/Not Resolved]

NARRATIVE: CASE EVENT DATE: 20221101
